FAERS Safety Report 5401202-8 (Version None)
Quarter: 2007Q3

REPORT INFORMATION
  Report Type: 
  Country: None (occurrence: None)
  Receive Date: 20070726
  Receipt Date: 20070715
  Transmission Date: 20080115
  Serious: Yes (Death, Life-Threatening, Other)
  Sender: FDA-Public Use
  Company Number: 07H-163-0312890-00

PATIENT
  Age: 5 Month
  Sex: Female
  Weight: 5.3 kg

DRUGS (14)
  1. PROPOFOL [Suspect]
     Indication: INDUCTION OF ANAESTHESIA
     Dosage: 15 MG
  2. NITROUS OXIDE (NITROUS OXIDE) [Suspect]
     Indication: INDUCTION OF ANAESTHESIA
     Dosage: INHALATION
     Route: 055
  3. SEVOFLURANE [Suspect]
     Indication: INDUCTION OF ANAESTHESIA
     Dosage: INHALATION
     Route: 055
  4. ROCURONIUM (ROCURONIUM) [Suspect]
     Indication: NEUROMUSCULAR BLOCKADE
  5. CALCIUM (CALCIUM) [Concomitant]
  6. ALBUMIN (HUMAN) [Concomitant]
  7. PACKED RED BLOOD CELL (RED BLOOD CELLS) [Concomitant]
  8. DOPAMINE HCL [Concomitant]
  9. NOREPINEPHRINE BITARTRATE [Concomitant]
  10. AMIODARONE HCL [Concomitant]
  11. INSULIN (INSULIN) [Concomitant]
  12. ESMOLOL (ESMOLOL) [Concomitant]
  13. PROPRANOLOL [Concomitant]
  14. RECOMBINANT HUMAN ACID ALPHA-GLUCOSIDASE (ACID ALPHA GLUCOSIDASE) [Concomitant]

REACTIONS (6)
  - CARDIAC DISORDER [None]
  - CARDIO-RESPIRATORY ARREST [None]
  - GLYCOGEN STORAGE DISORDER [None]
  - TORSADE DE POINTES [None]
  - VENTRICULAR FIBRILLATION [None]
  - VENTRICULAR TACHYCARDIA [None]
